FAERS Safety Report 4360873-8 (Version None)
Quarter: 2004Q2

REPORT INFORMATION
  Report Type: 
  Country: None (occurrence: None)
  Receive Date: 20040519
  Receipt Date: 20040519
  Transmission Date: 20050107
  Serious: No
  Sender: FDA-Public Use
  Company Number: None

PATIENT
  Age: 77 Year
  Sex: Male

DRUGS (2)
  1. LISINOPRIL [Suspect]
     Indication: CARDIAC FAILURE CONGESTIVE
     Dosage: 5 MG PO QD
     Route: 048
     Dates: start: 20040105, end: 20040116
  2. LISINOPRIL [Suspect]
     Indication: HYPERTENSION
     Dosage: 5 MG PO QD
     Route: 048
     Dates: start: 20040105, end: 20040116

REACTIONS (1)
  - RENAL FAILURE ACUTE [None]
